FAERS Safety Report 19128049 (Version 1)
Quarter: 2021Q2

REPORT INFORMATION
  Report Type: Spontaneous
  Country: US (occurrence: US)
  Receive Date: 20210413
  Receipt Date: 20210413
  Transmission Date: 20210717
  Serious: Yes (Death)
  Sender: FDA-Public Use
  Company Number: None

PATIENT
  Age: 53 Year
  Sex: Male

DRUGS (11)
  1. ASPIRIN. [Concomitant]
     Active Substance: ASPIRIN
  2. ATIVAN [Concomitant]
     Active Substance: LORAZEPAM
  3. HALOPERIDOL. [Concomitant]
     Active Substance: HALOPERIDOL
  4. ENSURE [Concomitant]
     Active Substance: AMINO ACIDS\DEXTROSE\ELECTROLYTES NOS\SOYBEAN OIL\VITAMINS
  5. MILK OF MAGN [Concomitant]
  6. ZOLOFT [Concomitant]
     Active Substance: SERTRALINE HYDROCHLORIDE
  7. IPRATROPIUM [Concomitant]
     Active Substance: IPRATROPIUM
  8. KLONOPIN [Concomitant]
     Active Substance: CLONAZEPAM
  9. ONDANETRON [Concomitant]
  10. TRIAMCINOLON [Concomitant]
  11. TETRABENAZINE    25 MG TAB [Suspect]
     Active Substance: TETRABENAZINE
     Indication: HUNTINGTON^S DISEASE
     Route: 048
     Dates: start: 20190114

REACTIONS (1)
  - Death [None]

NARRATIVE: CASE EVENT DATE: 20210306
